FAERS Safety Report 6636571-4 (Version None)
Quarter: 2010Q1

REPORT INFORMATION
  Report Type: 
  Country: None (occurrence: None)
  Receive Date: 20100310
  Receipt Date: 20100223
  Transmission Date: 20100710
  Serious: Yes (Life-Threatening, Other)
  Sender: FDA-Public Use
  Company Number: 2010SCPR000378

PATIENT
  Age: 71 Year
  Sex: Male

DRUGS (2)
  1. VERAPAMIL HYDROCHLORIDE [Suspect]
     Indication: DRUG USE FOR UNKNOWN INDICATION
     Dosage: 240 MG
  2. ATENOLOL [Suspect]
     Indication: DRUG USE FOR UNKNOWN INDICATION
     Dosage: 100 MG

REACTIONS (7)
  - ASTHENIA [None]
  - BLOOD PRESSURE ABNORMAL [None]
  - CARDIOGENIC SHOCK [None]
  - DYSPNOEA [None]
  - EJECTION FRACTION ABNORMAL [None]
  - HEART RATE ABNORMAL [None]
  - VENTRICULAR HYPOKINESIA [None]
